FAERS Safety Report 25874619 (Version 1)
Quarter: 2025Q4

REPORT INFORMATION
  Report Type: Spontaneous
  Country: EU (occurrence: EU)
  Receive Date: 20251002
  Receipt Date: 20251002
  Transmission Date: 20260118
  Serious: Yes (Other)
  Sender: TEVA
  Company Number: None

PATIENT
  Sex: Female

DRUGS (2)
  1. BUPROPION [Suspect]
     Active Substance: BUPROPION
     Indication: Product used for unknown indication
     Dosage: 150 MG IN THE MORNING; BUPROPION RATIOPHARM
     Route: 065
     Dates: end: 2025
  2. BUPROPION HYDROCHLORIDE [Suspect]
     Active Substance: BUPROPION HYDROCHLORIDE
     Indication: Product used for unknown indication
     Dosage: 150 MG IN THE MORNING
     Route: 065
     Dates: end: 2025

REACTIONS (6)
  - Mood swings [Recovered/Resolved]
  - Drug intolerance [Recovered/Resolved]
  - Discomfort [Recovered/Resolved]
  - Dissociative disorder [Recovered/Resolved]
  - Emotional distress [Recovered/Resolved]
  - Apathy [Recovered/Resolved]
